FAERS Safety Report 22199022 (Version 1)
Quarter: 2023Q2

REPORT INFORMATION
  Report Type: Spontaneous
  Country: US (occurrence: US)
  Receive Date: 20230411
  Receipt Date: 20230411
  Transmission Date: 20230722
  Serious: No
  Sender: FDA-Public Use
  Company Number: US-Teikoku Pharma USA-TPU2023-00166

PATIENT
  Age: 66 Year
  Sex: Female
  Weight: 136.20 kg

DRUGS (1)
  1. LIDOCAINE PATCH [Suspect]
     Active Substance: LIDOCAINE
     Indication: Sciatica
     Route: 061
     Dates: start: 202303

REACTIONS (3)
  - Vomiting [Unknown]
  - Limb injury [Unknown]
  - Walking aid user [Unknown]

NARRATIVE: CASE EVENT DATE: 20230330
